FAERS Safety Report 8884778 (Version 1)
Quarter: 2012Q4

REPORT INFORMATION
  Report Type: 
  Country: CA (occurrence: CA)
  Receive Date: 20121102
  Receipt Date: 20121102
  Transmission Date: 20130627
  Serious: Yes (Other)
  Sender: FDA-Public Use
  Company Number: CA-PFIZER INC-2012269539

PATIENT
  Age: 76 Year
  Sex: Male

DRUGS (2)
  1. CELEBREX [Suspect]
     Indication: ARTHRITIS
     Dosage: 200 mg, 1x/day
     Dates: start: 20050919
  2. BEXTRA [Suspect]
     Indication: ARTHRITIS
     Dosage: 20 mg, 1x/day
     Dates: start: 20041004

REACTIONS (2)
  - Carotid artery stenosis [Unknown]
  - Angiopathy [Unknown]
